FAERS Safety Report 8919940 (Version 1)
Quarter: 2012Q4

REPORT INFORMATION
  Report Type: 
  Country: US (occurrence: US)
  Receive Date: 20121121
  Receipt Date: 20121121
  Transmission Date: 20130627
  Serious: No
  Sender: FDA-Public Use
  Company Number: US-BAYER-2012-120740

PATIENT
  Sex: Female

DRUGS (3)
  1. ALEVE GELCAP [Suspect]
     Dosage: 3 DF, QD
     Route: 048
     Dates: start: 2012, end: 20121108
  2. ALEVE GELCAP [Suspect]
     Dosage: 3 DF, ONCE
  3. METHOTREXATE [Concomitant]

REACTIONS (3)
  - Palpitations [Recovered/Resolved]
  - Inappropriate schedule of drug administration [None]
  - Incorrect drug administration duration [None]
